FAERS Safety Report 4660807-2 (Version None)
Quarter: 2005Q2

REPORT INFORMATION
  Report Type: 
  Country: None (occurrence: None)
  Receive Date: 20050511
  Receipt Date: 20050504
  Transmission Date: 20051028
  Serious: Yes (Hospitalization)
  Sender: FDA-Public Use
  Company Number: 211881

PATIENT
  Age: 67 Year
  Sex: Male

DRUGS (11)
  1. AVASTIN [Suspect]
     Indication: COLON CANCER
     Dosage: 425 MG, INTRAVENOUS
     Route: 042
     Dates: start: 20040816
  2. ERLOTINIB (ERLOTINIB) TABLET, 150MG [Suspect]
     Indication: COLON CANCER
     Dosage: SEE IMAGE, ORAL
     Route: 048
     Dates: start: 20040816
  3. ERLOTINIB (ERLOTINIB) TABLET, 150MG [Suspect]
     Indication: COLON CANCER
     Dosage: SEE IMAGE, ORAL
     Route: 048
     Dates: start: 20041008
  4. FLUOROURACIL [Suspect]
     Indication: COLON CANCER
     Dosage: SEE IMAGE
     Dates: start: 20040816
  5. LEUCOVORIN CALCIUM [Suspect]
     Indication: COLON CANCER
     Dosage: 416 MG, INTRAVENOUS
     Route: 042
     Dates: start: 20040816
  6. OXALIPLATIN (OXALIPLATIN) [Suspect]
     Indication: COLON CANCER
     Dosage: 177 MG, INTRAVENOUS
     Route: 042
     Dates: start: 20040816
  7. THORAZINE [Concomitant]
  8. OXYCONTIN [Concomitant]
  9. SENNA (SENNA) [Concomitant]
  10. DULCOLAX [Concomitant]
  11. MEGACE [Concomitant]

REACTIONS (14)
  - ACTIVATED PARTIAL THROMBOPLASTIN TIME PROLONGED [None]
  - BACK PAIN [None]
  - BLOOD ALBUMIN DECREASED [None]
  - BLOOD ALKALINE PHOSPHATASE INCREASED [None]
  - BLOOD CALCIUM DECREASED [None]
  - DECREASED APPETITE [None]
  - DIZZINESS POSTURAL [None]
  - FAILURE TO THRIVE [None]
  - FATIGUE [None]
  - HICCUPS [None]
  - INTERNATIONAL NORMALISED RATIO INCREASED [None]
  - PROTEIN TOTAL DECREASED [None]
  - PROTHROMBIN TIME PROLONGED [None]
  - WHITE BLOOD CELL COUNT INCREASED [None]
